FAERS Safety Report 21252599 (Version 1)
Quarter: 2022Q3

REPORT INFORMATION
  Report Type: Spontaneous
  Country: US (occurrence: US)
  Receive Date: 20220825
  Receipt Date: 20220825
  Transmission Date: 20221027
  Serious: No
  Sender: FDA-Public Use
  Company Number: US-MAYNE PHARMA-2022MYN001110

PATIENT
  Sex: Female

DRUGS (2)
  1. CLONIDINE [Suspect]
     Active Substance: CLONIDINE
     Indication: Post-traumatic stress disorder
     Dosage: 0.1 MG, ONCE A WEEK
     Route: 062
     Dates: start: 20220615
  2. CLONIDINE [Suspect]
     Active Substance: CLONIDINE
     Indication: Sleep terror

REACTIONS (1)
  - Product adhesion issue [Not Recovered/Not Resolved]
